FAERS Safety Report 23694734 (Version 1)
Quarter: 2024Q2

REPORT INFORMATION
  Report Type: Report from Study
  Country: JP (occurrence: JP)
  Receive Date: 20240402
  Receipt Date: 20240402
  Transmission Date: 20240716
  Serious: Yes (Hospitalization, Other)
  Sender: FDA-Public Use
  Company Number: JP-GSKJP-JP2023GSK181827AA

PATIENT

DRUGS (7)
  1. BELIMUMAB [Suspect]
     Active Substance: BELIMUMAB
     Indication: Systemic lupus erythematosus
     Dosage: 200 MG, WE
     Route: 058
     Dates: start: 20220929, end: 20230112
  2. BELIMUMAB [Suspect]
     Active Substance: BELIMUMAB
     Indication: Lupus enteritis
  3. PREDONINE [Concomitant]
     Active Substance: PREDNISOLONE
     Indication: Systemic lupus erythematosus
     Dosage: 8 MG, QD
     Route: 048
     Dates: start: 20220929, end: 20221207
  4. PREDONINE [Concomitant]
     Active Substance: PREDNISOLONE
     Dosage: 7.5 MG, QD
     Route: 048
     Dates: start: 20221208, end: 20230120
  5. PREDONINE [Concomitant]
     Active Substance: PREDNISOLONE
     Dosage: 20 MG, QD
     Route: 048
     Dates: start: 20230124
  6. PREDONINE [Concomitant]
     Active Substance: PREDNISOLONE
     Indication: Systemic lupus erythematosus
     Dosage: 30 MG, QD
     Route: 042
     Dates: start: 20230121, end: 20230124
  7. PLAQUENIL [Concomitant]
     Active Substance: HYDROXYCHLOROQUINE SULFATE
     Indication: Systemic lupus erythematosus
     Dosage: UNK

REACTIONS (3)
  - Suicidal ideation [Recovered/Resolved]
  - Depressive symptom [Recovered/Resolved]
  - Lupus enteritis [Recovering/Resolving]

NARRATIVE: CASE EVENT DATE: 20230112
